FAERS Safety Report 21892793 (Version 2)
Quarter: 2023Q1

REPORT INFORMATION
  Report Type: Spontaneous
  Country: US (occurrence: US)
  Receive Date: 20230120
  Receipt Date: 20230202
  Transmission Date: 20230417
  Serious: No
  Sender: FDA-Public Use
  Company Number: US-INSUD PHARMA-2301US00051

PATIENT

DRUGS (1)
  1. ESTRADIOL [Suspect]
     Active Substance: ESTRADIOL
     Indication: Product used for unknown indication
     Dosage: UNK
     Route: 061

REACTIONS (12)
  - Breast pain [Recovered/Resolved]
  - Breast tenderness [Recovered/Resolved]
  - Breast swelling [Recovered/Resolved]
  - Breast disorder female [Recovered/Resolved]
  - Back pain [Recovered/Resolved]
  - Vaginal haemorrhage [Recovered/Resolved]
  - Uterine spasm [Recovered/Resolved]
  - Product substitution issue [Unknown]
  - Product leakage [Unknown]
  - Exposure via skin contact [Recovered/Resolved]
  - Product odour abnormal [Unknown]
  - Product identification number issue [Unknown]

NARRATIVE: CASE EVENT DATE: 20230105
